FAERS Safety Report 9693992 (Version 2)
Quarter: 2014Q1

REPORT INFORMATION
  Report Type: Report from Study
  Country: DE (occurrence: DE)
  Receive Date: 20131118
  Receipt Date: 20140221
  Transmission Date: 20141002
  Serious: Yes (Hospitalization)
  Sender: FDA-Public Use
  Company Number: DE-TEVA-443903ISR

PATIENT
  Age: 67 Year
  Sex: Female

DRUGS (6)
  1. FLUDARABINE [Suspect]
     Dates: start: 20130713, end: 20130717
  2. TREOSULFAN [Concomitant]
     Dates: start: 20130713, end: 20130715
  3. ATG-FRESENIUS [Concomitant]
     Dates: start: 20130715, end: 20130717
  4. RITUXIMAB [Concomitant]
     Dates: start: 20130718, end: 20130718
  5. SIROLIMUS [Concomitant]
     Dates: start: 20130718, end: 20130718
  6. CELLCEPT [Concomitant]
     Dates: start: 20130719, end: 20130719

REACTIONS (3)
  - Pyrexia [Recovered/Resolved]
  - Graft versus host disease [Recovered/Resolved]
  - Eosinophilia [Recovered/Resolved]
